FAERS Safety Report 13701742 (Version 1)
Quarter: 2017Q2

REPORT INFORMATION
  Report Type: Report from Study
  Country: CA (occurrence: CA)
  Receive Date: 20170629
  Receipt Date: 20170629
  Transmission Date: 20170830
  Serious: Yes (Death, Other)
  Sender: FDA-Public Use
  Company Number: CA-ASTRAZENECA-2017SE63953

PATIENT
  Age: 28696 Day
  Sex: Male

DRUGS (1)
  1. ZOLADEX LA [Suspect]
     Active Substance: GOSERELIN ACETATE
     Indication: PROSTATE CANCER
     Route: 058
     Dates: start: 20130730

REACTIONS (7)
  - Death [Fatal]
  - Malignant neoplasm progression [Unknown]
  - Fat tissue decreased [Unknown]
  - Dry mouth [Unknown]
  - Metastases to liver [Not Recovered/Not Resolved]
  - Intra-abdominal fluid collection [Unknown]
  - Fatigue [Unknown]

NARRATIVE: CASE EVENT DATE: 20170622
